FAERS Safety Report 5760591-5 (Version None)
Quarter: 2008Q2

REPORT INFORMATION
  Report Type: 
  Country: None (occurrence: None)
  Receive Date: 20080602
  Receipt Date: 20080509
  Transmission Date: 20081010
  Serious: No
  Sender: FDA-Public Use
  Company Number: ADE# 08-064

PATIENT
  Age: 72 Year
  Sex: Male
  Weight: 95.2554 kg

DRUGS (10)
  1. DIGOXIN [Suspect]
     Indication: CORONARY ARTERIAL STENT INSERTION
     Dosage: 1 TABLET DAILY
     Dates: start: 20080508
  2. DIGOXIN [Suspect]
     Indication: CORONARY ARTERY BYPASS
     Dosage: 1 TABLET DAILY
     Dates: start: 20080508
  3. SYNTHROID [Concomitant]
  4. VITAMIN CAP [Concomitant]
  5. FISH OIL [Concomitant]
  6. ASPIRIN [Concomitant]
  7. SIMVASTATIN [Concomitant]
  8. PLAVIX [Concomitant]
  9. ZYRTEC [Concomitant]
  10. LISINOPRIL [Concomitant]

REACTIONS (6)
  - BLOOD PRESSURE IMMEASURABLE [None]
  - CHEST DISCOMFORT [None]
  - FEAR [None]
  - FEELING ABNORMAL [None]
  - HYPOVENTILATION [None]
  - MUSCULOSKELETAL DISCOMFORT [None]
